FAERS Safety Report 6472451-5 (Version None)
Quarter: 2009Q4

REPORT INFORMATION
  Report Type: 
  Country: None (occurrence: None)
  Receive Date: 20091201
  Receipt Date: 20091115
  Transmission Date: 20100525
  Serious: Yes (Hospitalization, Other)
  Sender: FDA-Public Use
  Company Number: 2009AP004505

PATIENT
  Age: 31 Year
  Sex: Female

DRUGS (7)
  1. HYDROCHLOROTHIAZIDE [Suspect]
     Dosage: 12.5 MG;QD;
  2. METOPROLOL [Concomitant]
  3. LORATADINE [Concomitant]
  4. LABETALOL HCL [Concomitant]
  5. IRON [Concomitant]
  6. MULTI-VITAMINS [Concomitant]
  7. PARACETAMOL [Concomitant]

REACTIONS (9)
  - AESTHESIONEUROBLASTOMA [None]
  - BLOOD CHLORIDE DECREASED [None]
  - BLOOD CORTISOL INCREASED [None]
  - BLOOD PRESSURE INCREASED [None]
  - DIZZINESS POSTURAL [None]
  - DRUG EXPOSURE DURING PREGNANCY [None]
  - INAPPROPRIATE ANTIDIURETIC HORMONE SECRETION [None]
  - NAUSEA [None]
  - VOMITING [None]
